FAERS Safety Report 4600731-4 (Version None)
Quarter: 2005Q1

REPORT INFORMATION
  Report Type: 
  Country: None (occurrence: None)
  Receive Date: 20050301
  Receipt Date: 20050222
  Transmission Date: 20050727
  Serious: Yes (Other)
  Sender: FDA-Public Use
  Company Number: 2004-03208

PATIENT
  Sex: Male

DRUGS (1)
  1. BCG THERAPEUTICS [Suspect]
     Indication: BLADDER CANCER
     Dosage: I. VES.
     Route: 043
     Dates: start: 19950712

REACTIONS (1)
  - NEUROPATHY PERIPHERAL [None]
